FAERS Safety Report 8184255-6 (Version None)
Quarter: 2012Q1

REPORT INFORMATION
  Report Type: 
  Country: None (occurrence: None)
  Receive Date: 20120305
  Receipt Date: 20120227
  Transmission Date: 20120608
  Serious: Yes (Hospitalization, Other)
  Sender: FDA-Public Use
  Company Number: US-JNJFOC-20120204670

PATIENT
  Sex: Female
  Weight: 56.7 kg

DRUGS (1)
  1. REMICADE [Suspect]
     Indication: COLITIS ULCERATIVE
     Route: 042
     Dates: start: 20110908, end: 20111020

REACTIONS (8)
  - WEIGHT DECREASED [None]
  - TREMOR [None]
  - MALNUTRITION [None]
  - DRUG INEFFECTIVE [None]
  - NEUTROPENIA [None]
  - HYPOKINESIA [None]
  - PYREXIA [None]
  - MALAISE [None]
